FAERS Safety Report 12100188 (Version 1)
Quarter: 2016Q1

REPORT INFORMATION
  Report Type: Spontaneous
  Country: US (occurrence: None)
  Receive Date: 20160219
  Receipt Date: 20160219
  Transmission Date: 20160526
  Serious: Yes (Other)
  Sender: FDA-Public Use
  Company Number: None

PATIENT
  Age: 55 Year
  Sex: Female

DRUGS (2)
  1. DULOXTINE  PRACO LABS [Suspect]
     Active Substance: DULOXETINE
     Dosage: 2 AM, 1 PM
     Route: 048
  2. DULOXETINE 300MG TEVA [Suspect]
     Active Substance: DULOXETINE
     Dosage: 2 AM, 1 PM
     Route: 048
     Dates: start: 20160125

REACTIONS (1)
  - Drug withdrawal syndrome [None]

NARRATIVE: CASE EVENT DATE: 20160217
